FAERS Safety Report 6768954-6 (Version None)
Quarter: 2010Q2

REPORT INFORMATION
  Report Type: 
  Country: None (occurrence: None)
  Receive Date: 20100615
  Receipt Date: 20100608
  Transmission Date: 20101027
  Serious: Yes (Hospitalization)
  Sender: FDA-Public Use
  Company Number: US-BIOGENIDEC-2010BI014974

PATIENT
  Age: 54 Year
  Sex: Female

DRUGS (2)
  1. AVONEX [Suspect]
     Indication: MULTIPLE SCLEROSIS
     Route: 030
     Dates: start: 20010208
  2. AVONEX [Suspect]
     Route: 030
     Dates: end: 20100420

REACTIONS (12)
  - BRAIN OEDEMA [None]
  - CENTRAL NERVOUS SYSTEM LESION [None]
  - DEVICE RELATED INFECTION [None]
  - INTESTINAL GANGRENE [None]
  - MALABSORPTION [None]
  - MULTIPLE SCLEROSIS RELAPSE [None]
  - OPERATIVE HAEMORRHAGE [None]
  - PNEUMONIA [None]
  - PYREXIA [None]
  - SEPSIS [None]
  - VOLVULUS OF SMALL BOWEL [None]
  - WEIGHT DECREASED [None]
